FAERS Safety Report 16749417 (Version 1)
Quarter: 2019Q3

REPORT INFORMATION
  Report Type: Spontaneous
  Country: DE (occurrence: DE)
  Receive Date: 20190828
  Receipt Date: 20190828
  Transmission Date: 20191005
  Serious: Yes (Other)
  Sender: FDA-Public Use
  Company Number: DE-PFIZER INC-2019362689

PATIENT
  Sex: Male

DRUGS (1)
  1. TOFACITINIB [Suspect]
     Active Substance: TOFACITINIB
     Indication: CROHN^S DISEASE
     Dosage: 10 MG, 2X/DAY

REACTIONS (4)
  - Off label use [Unknown]
  - Anaemia [Unknown]
  - Leukopenia [Unknown]
  - Product use in unapproved indication [Unknown]
